FAERS Safety Report 7013983-0 (Version None)
Quarter: 2010Q3

REPORT INFORMATION
  Report Type: 
  Country: None (occurrence: None)
  Receive Date: 20100926
  Receipt Date: 20100915
  Transmission Date: 20110219
  Serious: No
  Sender: FDA-Public Use
  Company Number: PHFR2010GB03723

PATIENT
  Age: 40 Year
  Sex: Male

DRUGS (1)
  1. TEGRETOL [Suspect]
     Indication: CONVULSION
     Dosage: 400 MG, BID

REACTIONS (1)
  - CONVULSION [None]
